FAERS Safety Report 25268299 (Version 1)
Quarter: 2025Q2

REPORT INFORMATION
  Report Type: Spontaneous
  Country: US (occurrence: None)
  Receive Date: 20250503
  Receipt Date: 20250503
  Transmission Date: 20250716
  Serious: Yes (Hospitalization, Disabling)
  Sender: FDA-CTU
  Company Number: None

PATIENT
  Age: 58 Week
  Sex: Male

DRUGS (11)
  1. OZEMPIC [Suspect]
     Active Substance: SEMAGLUTIDE
     Indication: Type 2 diabetes mellitus
     Route: 058
  2. OZEMPIC [Suspect]
     Active Substance: SEMAGLUTIDE
     Indication: Weight decreased
  3. JARDIANCE [Concomitant]
     Active Substance: EMPAGLIFLOZIN
  4. avortststin [Concomitant]
  5. WELLBUTRIN [Concomitant]
     Active Substance: BUPROPION HYDROCHLORIDE
  6. LAMOTRIGINE [Concomitant]
     Active Substance: LAMOTRIGINE
  7. VALIUM [Concomitant]
     Active Substance: DIAZEPAM
  8. VITAMINS [Concomitant]
     Active Substance: VITAMINS
  9. vitamin B 12 complex [Concomitant]
  10. VITAMIN C [Concomitant]
     Active Substance: ASCORBIC ACID
  11. VITAMIN D3 [Concomitant]
     Active Substance: CHOLECALCIFEROL

REACTIONS (5)
  - Gastrointestinal disorder [None]
  - Suicidal ideation [None]
  - Impaired quality of life [None]
  - Abdominal distension [None]
  - Eating disorder [None]

NARRATIVE: CASE EVENT DATE: 20250402
